FAERS Safety Report 24054374 (Version 5)
Quarter: 2024Q4

REPORT INFORMATION
  Report Type: Spontaneous
  Country: US (occurrence: US)
  Receive Date: 20240705
  Receipt Date: 20241104
  Transmission Date: 20250114
  Serious: No
  Sender: BIOGEN
  Company Number: US-BIOGEN-2024BI01271974

PATIENT
  Age: 57 Year
  Sex: Female

DRUGS (25)
  1. VUMERITY [Suspect]
     Active Substance: DIROXIMEL FUMARATE
     Indication: Multiple sclerosis
     Dosage: STARTING DOSE
     Route: 050
     Dates: start: 20230410
  2. VUMERITY [Suspect]
     Active Substance: DIROXIMEL FUMARATE
     Dosage: MAINTENANCE DOSE?TAKE 2 CAPSULES?(462MG) BY MOUTH?TWICE DAILY
     Route: 050
  3. LEVOTHYROXINE SODIUM [Concomitant]
     Active Substance: LEVOTHYROXINE SODIUM
     Route: 050
  4. FENOFIBRATE [Concomitant]
     Active Substance: FENOFIBRATE
     Route: 050
  5. LISINOPRIL [Concomitant]
     Active Substance: LISINOPRIL
     Route: 050
  6. CLOPIDOGREL [Concomitant]
     Active Substance: CLOPIDOGREL BISULFATE
     Route: 050
  7. PREDNISONE [Concomitant]
     Active Substance: PREDNISONE
     Route: 050
  8. CLONIDINE HYDROCHLORIDE [Concomitant]
     Active Substance: CLONIDINE HYDROCHLORIDE
     Route: 050
  9. FLOVENT HFA [Concomitant]
     Active Substance: FLUTICASONE PROPIONATE
     Route: 050
  10. PROAIR HFA [Concomitant]
     Active Substance: ALBUTEROL SULFATE
     Dosage: AER
     Route: 050
  11. NOVOLOG [Concomitant]
     Active Substance: INSULIN ASPART
     Dosage: 100UNITS/ML 3ML PEN 5PK
     Route: 050
  12. TYLENOL EXTRA STRENGTH [Concomitant]
     Active Substance: ACETAMINOPHEN
     Route: 050
  13. VERAPAMIL HCL [Concomitant]
     Active Substance: VERAPAMIL HYDROCHLORIDE
     Route: 050
  14. DILANTIN [Concomitant]
     Active Substance: PHENYTOIN
     Route: 050
  15. GABAPENTIN [Concomitant]
     Active Substance: GABAPENTIN
     Route: 050
  16. BACLOFEN [Concomitant]
     Active Substance: BACLOFEN
     Route: 050
  17. VITAMIN D [Concomitant]
     Active Substance: VITAMIN D NOS
     Route: 050
  18. VENLAFAXINE HCL [Concomitant]
     Active Substance: VENLAFAXINE HYDROCHLORIDE
     Route: 050
  19. ISOSORBIDE MONONITRATE [Concomitant]
     Active Substance: ISOSORBIDE MONONITRATE
     Route: 050
  20. LANTUS [Concomitant]
     Active Substance: INSULIN GLARGINE
     Route: 050
  21. MORPHINE SULFATE [Concomitant]
     Active Substance: MORPHINE SULFATE
     Route: 050
  22. FISH OIL [Concomitant]
     Active Substance: FISH OIL
     Route: 050
  23. PRAVASTATIN SODIUM [Concomitant]
     Active Substance: PRAVASTATIN SODIUM
     Route: 050
  24. CALCIUM [Concomitant]
     Active Substance: CALCIUM
     Dosage: CALCIUM HIGH POTENCY PLUS VI
     Route: 050
  25. HYDROXYZINE PAMOATE [Concomitant]
     Active Substance: HYDROXYZINE PAMOATE
     Dosage: CALCIUM HIGH POTENCY + VI
     Route: 050

REACTIONS (4)
  - Multiple sclerosis [Not Recovered/Not Resolved]
  - Shoulder fracture [Not Recovered/Not Resolved]
  - Malaise [Unknown]
  - Fall [Recovered/Resolved]

NARRATIVE: CASE EVENT DATE: 20240801
